FAERS Safety Report 17656611 (Version 1)
Quarter: 2020Q2

REPORT INFORMATION
  Report Type: Spontaneous
  Country: US (occurrence: US)
  Receive Date: 20200410
  Receipt Date: 20200410
  Transmission Date: 20200713
  Serious: Yes (Other)
  Sender: FDA-Public Use
  Company Number: None

PATIENT
  Age: 63 Year
  Sex: Female
  Weight: 105 kg

DRUGS (5)
  1. AZITHROMYCIN ANHYDROUS. [Suspect]
     Active Substance: AZITHROMYCIN ANHYDROUS
     Indication: CORONAVIRUS INFECTION
     Route: 042
     Dates: start: 20200325, end: 20200328
  2. LOPINAVIR-RITONAVIR 400 MG-100 MG [Concomitant]
     Dates: start: 20200326, end: 20200327
  3. HYDROXYCHLOROQUINE 200 MG [Concomitant]
     Active Substance: HYDROXYCHLOROQUINE
     Dates: start: 20200327, end: 20200327
  4. HYDROXYCHLOROQUINE 400 MG [Concomitant]
     Dates: start: 20200326, end: 20200327
  5. AZITHROMYCIN ANHYDROUS. [Suspect]
     Active Substance: AZITHROMYCIN ANHYDROUS
     Indication: PNEUMONIA
     Route: 042
     Dates: start: 20200325, end: 20200328

REACTIONS (1)
  - Electrocardiogram QT prolonged [None]

NARRATIVE: CASE EVENT DATE: 20200328
